FAERS Safety Report 8490435-2 (Version None)
Quarter: 2012Q3

REPORT INFORMATION
  Report Type: 
  Country: None (occurrence: None)
  Receive Date: 20120705
  Receipt Date: 20120626
  Transmission Date: 20120928
  Serious: Yes (Hospitalization)
  Sender: FDA-Public Use
  Company Number: US-ASTRAZENECA-2012SE43092

PATIENT
  Age: 45 Year
  Sex: Male
  Weight: 86.2 kg

DRUGS (3)
  1. ANTIBIOTICS [Concomitant]
  2. SEROQUEL [Suspect]
     Indication: BIPOLAR I DISORDER
     Route: 048
  3. SEROQUEL [Suspect]
     Indication: SLEEP DISORDER
     Route: 048

REACTIONS (4)
  - FEELING ABNORMAL [None]
  - OFF LABEL USE [None]
  - LOCALISED INFECTION [None]
  - DRUG DOSE OMISSION [None]
